FAERS Safety Report 10824609 (Version 1)
Quarter: 2015Q1

REPORT INFORMATION
  Report Type: Spontaneous
  Country: US (occurrence: None)
  Receive Date: 20150218
  Receipt Date: 20150218
  Transmission Date: 20150721
  Serious: Yes (Hospitalization)
  Sender: FDA-Public Use
  Company Number: 2014BI071980

PATIENT
  Age: 52 Year
  Sex: Female

DRUGS (1)
  1. AVONEX [Suspect]
     Active Substance: INTERFERON BETA-1A
     Indication: MULTIPLE SCLEROSIS
     Route: 030
     Dates: start: 1997

REACTIONS (5)
  - Gait disturbance [None]
  - Fatigue [None]
  - Cerebrovascular accident [None]
  - Tremor [None]
  - Hemiparesis [None]

NARRATIVE: CASE EVENT DATE: 20131010
